FAERS Safety Report 5804150-4 (Version None)
Quarter: 2008Q3

REPORT INFORMATION
  Report Type: 
  Country: None (occurrence: None)
  Receive Date: 20080702
  Receipt Date: 20070910
  Transmission Date: 20090109
  Serious: Yes (Other)
  Sender: FDA-Public Use
  Company Number: HQWYE129712SEP07

PATIENT
  Age: 79 Year
  Sex: Female
  Weight: 62.65 kg

DRUGS (2)
  1. IBUPROFEN TABLETS [Suspect]
     Indication: MUSCULOSKELETAL PAIN
     Dosage: 1 TABLET 2X PER 1 DAY, ORAL
     Route: 048
     Dates: start: 20070906, end: 20070909
  2. ATENOLOL [Concomitant]

REACTIONS (4)
  - BURNING SENSATION [None]
  - ERYTHEMA [None]
  - HYPERSENSITIVITY [None]
  - SWELLING FACE [None]
